FAERS Safety Report 10900037 (Version 1)
Quarter: 2015Q1

REPORT INFORMATION
  Report Type: Spontaneous
  Country: US (occurrence: US)
  Receive Date: 20150310
  Receipt Date: 20150310
  Transmission Date: 20150721
  Serious: No
  Sender: FDA-Public Use
  Company Number: US-TEVA-531554USA

PATIENT
  Age: 61 Year
  Sex: Female

DRUGS (1)
  1. CAPECITABINE. [Suspect]
     Active Substance: CAPECITABINE
     Dosage: 2000 MILLIGRAM DAILY; FOR 14 DAYS EVERY 21 DAYS
     Route: 048
     Dates: start: 20141022

REACTIONS (1)
  - Fatigue [Unknown]
